FAERS Safety Report 19905759 (Version 1)
Quarter: 2021Q3

REPORT INFORMATION
  Report Type: Spontaneous
  Country: US (occurrence: US)
  Receive Date: 20210930
  Receipt Date: 20210930
  Transmission Date: 20211014
  Serious: Yes (Other)
  Sender: FDA-Public Use
  Company Number: US-PFIZER INC-202101258726

PATIENT
  Age: 74 Year
  Sex: Male

DRUGS (4)
  1. METOPROLOL TARTRATE. [Suspect]
     Active Substance: METOPROLOL TARTRATE
     Indication: TOXIC EPIDERMAL NECROLYSIS
     Dosage: 25 MG, DAILY
  2. METHOTREXATE SODIUM. [Suspect]
     Active Substance: METHOTREXATE SODIUM
     Indication: PNEUMONIA
  3. METHOTREXATE SODIUM. [Suspect]
     Active Substance: METHOTREXATE SODIUM
     Indication: TOXIC EPIDERMAL NECROLYSIS
     Dosage: 25 MG, DAILY
  4. METOPROLOL TARTRATE. [Suspect]
     Active Substance: METOPROLOL TARTRATE
     Indication: PNEUMONIA

REACTIONS (4)
  - Accidental overdose [Unknown]
  - Off label use [Unknown]
  - Wrong product administered [Unknown]
  - Skin toxicity [Recovering/Resolving]
